FAERS Safety Report 9439782 (Version 3)
Quarter: 2013Q3

REPORT INFORMATION
  Report Type: Spontaneous
  Country: US (occurrence: US)
  Receive Date: 20130805
  Receipt Date: 20130923
  Transmission Date: 20140515
  Serious: Yes (Hospitalization, Other)
  Sender: FDA-Public Use
  Company Number: US-JNJFOC-20130522967

PATIENT
  Age: 50 Year
  Sex: Male
  Weight: 89.4 kg

DRUGS (6)
  1. XARELTO [Suspect]
     Indication: PULMONARY EMBOLISM
     Route: 048
  2. XARELTO [Suspect]
     Indication: PULMONARY EMBOLISM
     Route: 048
     Dates: start: 20130425, end: 20130507
  3. XARELTO [Suspect]
     Indication: DEEP VEIN THROMBOSIS
     Route: 048
  4. XARELTO [Suspect]
     Indication: DEEP VEIN THROMBOSIS
     Route: 048
     Dates: start: 20130425, end: 20130507
  5. OXYCODONE AND ACETAMINOPHEN [Concomitant]
     Dosage: START DATE/ STOP DATE 09-MAY-2013
     Route: 065
     Dates: start: 20130509
  6. FLOMAX [Concomitant]
     Dosage: START DATE/ STOP DATE 09-MAY-2013
     Route: 065
     Dates: start: 20130718

REACTIONS (4)
  - Fall [Unknown]
  - Spinal fracture [Unknown]
  - Extradural haematoma [Recovered/Resolved]
  - Traumatic haemorrhage [Recovered/Resolved]
